FAERS Safety Report 9676549 (Version 2)
Quarter: 2013Q4

REPORT INFORMATION
  Report Type: Spontaneous
  Country: US (occurrence: US)
  Receive Date: 20131107
  Receipt Date: 20131126
  Transmission Date: 20140711
  Serious: Yes (Other)
  Sender: FDA-Public Use
  Company Number: US-RB-060248-13

PATIENT
  Age: 34 Year
  Sex: Male

DRUGS (6)
  1. SUBOXONE FILM [Suspect]
     Indication: DRUG DEPENDENCE
     Dosage: SUBOXONE FILM; THE PATIENT WAS TAPERING ON HIS OWN DOWN TO 8 MG; TAKING 1/4 STRIP 4 TIMES DAILY
     Route: 060
     Dates: start: 201212, end: 201310
  2. SUBOXONE FILM [Suspect]
     Dosage: SUBOXONE FILM; TAKING 1/4 STRIP TWICE DAILY
     Route: 060
     Dates: start: 201310, end: 201310
  3. SUBOXONE FILM [Suspect]
     Dosage: SUBOXONE FILM; TAKING 1/4 OF STRIP 4 TIMES DAILY
     Route: 060
     Dates: start: 201310
  4. TOPAMAX [Concomitant]
     Indication: EPILEPSY
     Dosage: DOSING DETAILS UNKNOWN
     Route: 048
     Dates: start: 1992
  5. TRILEPTAL [Concomitant]
     Indication: EPILEPSY
     Dosage: DOSING DETAILS UNKNOWN
     Route: 048
     Dates: start: 1992
  6. METOPROLOL [Concomitant]
     Indication: CARDIAC DISORDER
     Dosage: DOSING DETAILS UNKNOWN
     Route: 048
     Dates: start: 1992

REACTIONS (6)
  - Wrong technique in drug usage process [Not Recovered/Not Resolved]
  - Intentional underdose [Not Recovered/Not Resolved]
  - Intentional underdose [Recovered/Resolved]
  - Parkinson^s disease [Recovered/Resolved]
  - Epilepsy [Recovered/Resolved]
  - Muscle twitching [Recovered/Resolved]
